FAERS Safety Report 9401316 (Version 1)
Quarter: 2013Q3

REPORT INFORMATION
  Report Type: Report from Study
  Country: US (occurrence: US)
  Receive Date: 20130715
  Receipt Date: 20130715
  Transmission Date: 20140515
  Serious: Yes (Hospitalization, Other)
  Sender: FDA-Public Use
  Company Number: US-009507513-1307USA005503

PATIENT
  Sex: Male

DRUGS (6)
  1. TEMODAR [Suspect]
     Indication: METASTATIC MALIGNANT MELANOMA
     Dosage: 430 MG, CYCLICAL, ON DAYS 1 THROUGH 4
     Dates: end: 20130517
  2. INTRONA [Suspect]
     Indication: METASTATIC MALIGNANT MELANOMA
     Dosage: 1 DF, CYCLICAL
     Dates: end: 20130517
  3. IPILIMUMAB [Suspect]
     Indication: METASTATIC MALIGNANT MELANOMA
     Dosage: 3 MG/KG, CYCLICAL
     Dates: end: 20130513
  4. RECOMBINANT HUMAN INTERLEUKIN-2 (125ALA) [Suspect]
     Indication: METASTATIC MALIGNANT MELANOMA
     Dosage: 19 MILLION UNITS ON DAYS 2-4, CYCLICAL
     Route: 042
     Dates: end: 20130517
  5. CISPLATIN [Suspect]
     Indication: METASTATIC MALIGNANT MELANOMA
     Dosage: 20 MG/M2, CYCLICAL
     Dates: end: 20130515
  6. CISPLATIN [Suspect]
     Dosage: 20 MG/M2, CYCLICAL

REACTIONS (1)
  - Pneumonitis [Not Recovered/Not Resolved]
